FAERS Safety Report 20062618 (Version 1)
Quarter: 2021Q4

REPORT INFORMATION
  Report Type: Spontaneous
  Country: US (occurrence: US)
  Receive Date: 20211112
  Receipt Date: 20211112
  Transmission Date: 20220303
  Serious: Yes (Other)
  Sender: FDA-Public Use
  Company Number: US-REGENERON PHARMACEUTICALS, INC.-2021-100048

PATIENT

DRUGS (3)
  1. EYLEA [Suspect]
     Active Substance: AFLIBERCEPT
     Indication: Neovascular age-related macular degeneration
     Dosage: UNK UNK, MONTHLY
     Route: 031
     Dates: start: 20210311, end: 20210311
  2. EYLEA [Suspect]
     Active Substance: AFLIBERCEPT
     Dosage: UNK, MONTHLY
     Route: 031
     Dates: start: 20210915, end: 20210915
  3. EYLEA [Suspect]
     Active Substance: AFLIBERCEPT
     Dosage: UNK, MONTHLY
     Route: 031
     Dates: start: 20211011

REACTIONS (3)
  - Optic nerve disorder [Unknown]
  - Retinal degeneration [Unknown]
  - Visual field defect [Unknown]

NARRATIVE: CASE EVENT DATE: 20211005
